FAERS Safety Report 8119845-X (Version None)
Quarter: 2012Q1

REPORT INFORMATION
  Report Type: 
  Country: None (occurrence: None)
  Receive Date: 20120207
  Receipt Date: 20110311
  Transmission Date: 20120608
  Serious: No
  Sender: FDA-Public Use
  Company Number: US-ABBOTT-11P-163-0710983-00

PATIENT
  Age: 40 Year
  Sex: Female

DRUGS (15)
  1. NORVASC [Concomitant]
     Indication: HYPERTENSION
  2. FOLIC ACID [Concomitant]
     Indication: VITAMIN SUPPLEMENTATION
  3. LEXAPRO [Concomitant]
     Indication: DEPRESSION
  4. ASTAPRO [Concomitant]
     Indication: PRODUCT USED FOR UNKNOWN INDICATION
     Dosage: 2 PUFFS DAILY
     Route: 045
  5. XANAX [Concomitant]
     Indication: ANXIETY
     Dosage: AS NEEDED
  6. NORETHINDRONE [Concomitant]
     Indication: MENORRHAGIA
     Dosage: AS NEEDED
  7. BUSPIRONE HCL [Concomitant]
     Indication: ANXIETY
  8. CYMBALTA [Concomitant]
     Indication: DEPRESSION
  9. PROAIR HFA [Concomitant]
     Indication: PRODUCT USED FOR UNKNOWN INDICATION
  10. LEXAPRO [Concomitant]
     Indication: ANXIETY
  11. ARAVA [Concomitant]
     Indication: RHEUMATOID ARTHRITIS
  12. HUMIRA [Suspect]
     Indication: RHEUMATOID ARTHRITIS
     Dates: start: 20110310
  13. ALVESCO [Concomitant]
     Indication: ASTHMA
  14. NEXIUM [Concomitant]
     Indication: GASTROOESOPHAGEAL REFLUX DISEASE
  15. NASONEX [Concomitant]
     Indication: PRODUCT USED FOR UNKNOWN INDICATION
     Dosage: 4 SPRAYS DAILY

REACTIONS (3)
  - PAIN [None]
  - ARTHRALGIA [None]
  - HYPOAESTHESIA [None]
